FAERS Safety Report 8072086-7 (Version None)
Quarter: 2011Q4

REPORT INFORMATION
  Report Type: 
  Country: None (occurrence: None)
  Receive Date: 20111221
  Receipt Date: 20110531
  Transmission Date: 20120403
  Serious: Yes (Other)
  Sender: FDA-Public Use
  Company Number: PHHY2011US47608

PATIENT
  Age: 51 Year
  Sex: Female
  Weight: 54.4 kg

DRUGS (1)
  1. EXJADE [Suspect]
     Indication: SICKLE CELL ANAEMIA
     Dosage: 1250 MG, DAILY, ORAL ; 1250 MG, DAILY, ORAL
     Route: 048
     Dates: start: 20070101

REACTIONS (3)
  - DIARRHOEA [None]
  - SICKLE CELL ANAEMIA WITH CRISIS [None]
  - PAIN [None]
